FAERS Safety Report 15467495 (Version 1)
Quarter: 2018Q4

REPORT INFORMATION
  Report Type: Spontaneous
  Country: US (occurrence: US)
  Receive Date: 20181005
  Receipt Date: 20181005
  Transmission Date: 20190204
  Serious: No
  Sender: FDA-Public Use
  Company Number: US-DRREDDYS-USA/USA/18/0103919

PATIENT
  Age: 59 Year
  Sex: Male
  Weight: 129.54 kg

DRUGS (2)
  1. BUPRENORPHINE AND NALOXONE SUBLINGUAL FILM 2 MG/0.5 MG AND 8MG/2MG [Suspect]
     Active Substance: BUPRENORPHINE\NALOXONE
     Indication: PAIN
     Route: 065
  2. OXYCODONE [Concomitant]
     Active Substance: OXYCODONE
     Indication: PRODUCT USED FOR UNKNOWN INDICATION
     Route: 065

REACTIONS (15)
  - Swelling [Unknown]
  - Drug dependence [Unknown]
  - Constipation [Recovered/Resolved]
  - Gynaecomastia [Unknown]
  - Chest pain [Unknown]
  - Underdose [Unknown]
  - Asthenia [Unknown]
  - Hyperhidrosis [Unknown]
  - Dry mouth [Unknown]
  - Off label use [Unknown]
  - Feeling abnormal [Unknown]
  - Wrong technique in product usage process [Unknown]
  - Dyspnoea [Unknown]
  - Treatment noncompliance [Unknown]
  - Withdrawal syndrome [Recovered/Resolved]
